FAERS Safety Report 9929399 (Version 2)
Quarter: 2014Q2

REPORT INFORMATION
  Report Type: Report from Study
  Country: ZA (occurrence: ZA)
  Receive Date: 20140227
  Receipt Date: 20140422
  Transmission Date: 20141212
  Serious: Yes (Life-Threatening)
  Sender: FDA-Public Use
  Company Number: ZA-BRISTOL-MYERS SQUIBB COMPANY-20338174

PATIENT
  Sex: Female
  Weight: 1.05 kg

DRUGS (3)
  1. ATAZANAVIR [Suspect]
     Route: 064
     Dates: start: 20130812
  2. RITONAVIR [Suspect]
     Route: 064
     Dates: start: 20130812
  3. LAMIVUDINE + ZIDOVUDINE [Suspect]
     Route: 064
     Dates: start: 20130812

REACTIONS (3)
  - Premature baby [Unknown]
  - Sepsis [Unknown]
  - Necrotising colitis [Unknown]
